FAERS Safety Report 19588553 (Version 1)
Quarter: 2021Q3

REPORT INFORMATION
  Report Type: Report from Study
  Country: RU (occurrence: RU)
  Receive Date: 20210721
  Receipt Date: 20210721
  Transmission Date: 20211014
  Serious: Yes (Death, Life-Threatening, Hospitalization)
  Sender: FDA-Public Use
  Company Number: RU-ROCHE-2869658

PATIENT
  Age: 87 Year
  Sex: Female
  Weight: 68 kg

DRUGS (4)
  1. CLOPIDOGREL [Suspect]
     Active Substance: CLOPIDOGREL BISULFATE
     Indication: ACUTE MYOCARDIAL INFARCTION
     Route: 048
     Dates: start: 20210209, end: 20210212
  2. INTEGRILIN [Concomitant]
     Active Substance: EPTIFIBATIDE
     Indication: VASCULAR STENT THROMBOSIS
     Route: 042
     Dates: start: 20210209, end: 20210210
  3. TENECTEPLASE [Suspect]
     Active Substance: TENECTEPLASE
     Indication: ACUTE MYOCARDIAL INFARCTION
     Dosage: STRENGTH: 6,000 UNITS [30 MG]
     Route: 042
  4. PLACEBO [Suspect]
     Active Substance: UNSPECIFIED INGREDIENT
     Indication: ACUTE MYOCARDIAL INFARCTION
     Route: 065

REACTIONS (3)
  - Pneumonia [Not Recovered/Not Resolved]
  - Haemorrhage [Recovered/Resolved]
  - Death [Fatal]

NARRATIVE: CASE EVENT DATE: 20210210
